FAERS Safety Report 12585672 (Version 1)
Quarter: 2016Q3

REPORT INFORMATION
  Report Type: Spontaneous
  Country: KP (occurrence: KP)
  Receive Date: 20160725
  Receipt Date: 20160725
  Transmission Date: 20161109
  Serious: Yes (Hospitalization, Other)
  Sender: FDA-Public Use
  Company Number: KP-ALEMBIC PHARMACUETICALS LIMITED-2016SCAL000597

PATIENT

DRUGS (1)
  1. TELMISARTAN. [Suspect]
     Active Substance: TELMISARTAN
     Indication: PRODUCT USED FOR UNKNOWN INDICATION
     Dosage: 40 MG, UNK
     Route: 064

REACTIONS (7)
  - Bronchopulmonary dysplasia [Unknown]
  - Sepsis neonatal [Unknown]
  - Foetal exposure during pregnancy [Unknown]
  - Premature baby [Unknown]
  - Low birth weight baby [Unknown]
  - Intraventricular haemorrhage neonatal [Unknown]
  - Neonatal respiratory distress syndrome [Unknown]
